FAERS Safety Report 6921121-5 (Version None)
Quarter: 2010Q3

REPORT INFORMATION
  Report Type: 
  Country: None (occurrence: None)
  Receive Date: 20100812
  Receipt Date: 20100729
  Transmission Date: 20110219
  Serious: Yes (Hospitalization)
  Sender: FDA-Public Use
  Company Number: B0668976A

PATIENT
  Sex: Female

DRUGS (1)
  1. ALLI [Suspect]
     Route: 065

REACTIONS (5)
  - BLISTER [None]
  - MENTAL DISORDER [None]
  - OROPHARYNGEAL BLISTERING [None]
  - PYREXIA [None]
  - SCAR [None]
